FAERS Safety Report 12536040 (Version 1)
Quarter: 2016Q3

REPORT INFORMATION
  Report Type: Spontaneous
  Country: US (occurrence: None)
  Receive Date: 20160706
  Receipt Date: 20160706
  Transmission Date: 20161109
  Serious: Yes (Hospitalization)
  Sender: FDA-Public Use
  Company Number: None

PATIENT
  Age: 82 Year
  Sex: Male
  Weight: 79.38 kg

DRUGS (3)
  1. VITAMINS NOS [Concomitant]
     Active Substance: VITAMINS
  2. CARVEDILOL. [Concomitant]
     Active Substance: CARVEDILOL
  3. XARELTO [Suspect]
     Active Substance: RIVAROXABAN
     Indication: DEEP VEIN THROMBOSIS
     Dosage: 15 MG 60 TABS BID PO
     Route: 048
     Dates: start: 20160614, end: 20160617

REACTIONS (2)
  - Hyperthyroidism [None]
  - Haemorrhage urinary tract [None]

NARRATIVE: CASE EVENT DATE: 20160618
